FAERS Safety Report 9158840 (Version 1)
Quarter: 2013Q1

REPORT INFORMATION
  Report Type: Spontaneous
  Country: GR (occurrence: GR)
  Receive Date: 20130313
  Receipt Date: 20130313
  Transmission Date: 20140127
  Serious: Yes (Other)
  Sender: FDA-Public Use
  Company Number: GR-AMGEN-GRCSP2013015864

PATIENT
  Sex: 0

DRUGS (1)
  1. VECTIBIX [Suspect]
     Indication: PRODUCT USED FOR UNKNOWN INDICATION
     Dosage: UNK

REACTIONS (9)
  - Gastric haemorrhage [Unknown]
  - Gastric ulcer [Unknown]
  - Faeces discoloured [Unknown]
  - Blood potassium decreased [Unknown]
  - Mouth ulceration [Unknown]
  - Diarrhoea [Unknown]
  - Acne [Unknown]
  - Pruritus [Unknown]
  - Fatigue [Unknown]
